FAERS Safety Report 8027042-1 (Version None)
Quarter: 2012Q1

REPORT INFORMATION
  Report Type: 
  Country: None (occurrence: None)
  Receive Date: 20120106
  Receipt Date: 20120103
  Transmission Date: 20120608
  Serious: Yes (Death)
  Sender: FDA-Public Use
  Company Number: US-PFIZER INC-2012001236

PATIENT
  Sex: Male

DRUGS (1)
  1. SUTENT [Suspect]
     Indication: RENAL CANCER
     Dosage: 12.5 UNK, UNK
     Dates: start: 20110823, end: 20111221

REACTIONS (2)
  - RESPIRATORY FAILURE [None]
  - PULMONARY OEDEMA [None]
